FAERS Safety Report 20024963 (Version 1)
Quarter: 2021Q4

REPORT INFORMATION
  Report Type: Spontaneous
  Country: US (occurrence: US)
  Receive Date: 20211102
  Receipt Date: 20211102
  Transmission Date: 20220303
  Serious: No
  Sender: FDA-Public Use
  Company Number: US-JAZZ-2021-US-014038

PATIENT
  Sex: Female

DRUGS (1)
  1. XYREM [Suspect]
     Active Substance: SODIUM OXYBATE
     Indication: Exposure via body fluid
     Dosage: UNKNOWN DOSE AND FREQUENCY
     Route: 067

REACTIONS (2)
  - Exposure during pregnancy [Unknown]
  - Exposure via body fluid [Unknown]
